FAERS Safety Report 22980220 (Version 3)
Quarter: 2023Q4

REPORT INFORMATION
  Report Type: Report from Study
  Country: US (occurrence: US)
  Receive Date: 20230925
  Receipt Date: 20231226
  Transmission Date: 20240110
  Serious: No
  Sender: FDA-Public Use
  Company Number: US-ACADIA PHARMACEUTICALS INC.-ACA-2023-TRF-003839

PATIENT
  Sex: Female

DRUGS (3)
  1. DAYBUE [Suspect]
     Active Substance: TROFINETIDE
     Indication: Rett syndrome
     Dosage: 60 MILLILITER, BID
     Route: 048
     Dates: end: 20230831
  2. DAYBUE [Suspect]
     Active Substance: TROFINETIDE
     Indication: Upper motor neurone lesion
     Dosage: 10 MILLILITER, BID
     Route: 048
     Dates: start: 202310, end: 20231016
  3. DAYBUE [Suspect]
     Active Substance: TROFINETIDE
     Dosage: 60 MILLILITER, BID
     Route: 048
     Dates: start: 202311

REACTIONS (11)
  - Abdominal pain [Not Recovered/Not Resolved]
  - Underdose [Unknown]
  - Constipation [Unknown]
  - Retching [Unknown]
  - Off label use [Unknown]
  - Diarrhoea [Unknown]
  - Diarrhoea [Not Recovered/Not Resolved]
  - Vomiting [Unknown]
  - Vomiting [Unknown]
  - Vomiting [Unknown]
  - Diarrhoea [Unknown]
